FAERS Safety Report 16470295 (Version 1)
Quarter: 2019Q2

REPORT INFORMATION
  Report Type: Spontaneous
  Country: US (occurrence: US)
  Receive Date: 20190624
  Receipt Date: 20190624
  Transmission Date: 20190711
  Serious: No
  Sender: FDA-Public Use
  Company Number: US-TEVA-2019-US-1065125

PATIENT
  Sex: Female

DRUGS (2)
  1. CLONAZEPAM ORALLY DISINTEGRATING TABLETS [Suspect]
     Active Substance: CLONAZEPAM
     Indication: ANXIETY
     Dates: start: 20190601
  2. CLONAZEPAM ORALLY DISINTEGRATING TABLETS [Suspect]
     Active Substance: CLONAZEPAM
     Indication: PANIC ATTACK

REACTIONS (4)
  - Anxiety [Unknown]
  - Paraesthesia [Unknown]
  - Feeling jittery [Unknown]
  - Product substitution issue [Unknown]

NARRATIVE: CASE EVENT DATE: 201906
